FAERS Safety Report 10724681 (Version 6)
Quarter: 2015Q1

REPORT INFORMATION
  Report Type: Report from Study
  Country: JP (occurrence: JP)
  Receive Date: 20150120
  Receipt Date: 20150220
  Transmission Date: 20150721
  Serious: Yes (Hospitalization)
  Sender: FDA-Public Use
  Company Number: JP-GLAXOSMITHKLINE INC.-JP2015GSK003851

PATIENT
  Sex: Female
  Weight: 44.8 kg

DRUGS (1)
  1. ALBIGLUTIDE [Suspect]
     Active Substance: ALBIGLUTIDE
     Indication: TYPE 2 DIABETES MELLITUS
     Dosage: 50 MG, WE
     Dates: start: 20130925

REACTIONS (1)
  - Rathke^s cleft cyst [Recovered/Resolved]

NARRATIVE: CASE EVENT DATE: 20140901
